FAERS Safety Report 6979930-2 (Version None)
Quarter: 2010Q3

REPORT INFORMATION
  Report Type: 
  Country: None (occurrence: None)
  Receive Date: 20100914
  Receipt Date: 20100902
  Transmission Date: 20110219
  Serious: Yes (Other)
  Sender: FDA-Public Use
  Company Number: US-JNJFOC-20100708770

PATIENT
  Sex: Female
  Weight: 170 kg

DRUGS (2)
  1. REMICADE [Suspect]
     Indication: ARTHRITIS
     Route: 042
  2. REMICADE [Suspect]
     Indication: CROHN'S DISEASE
     Route: 042

REACTIONS (6)
  - ARTHROPATHY [None]
  - DERMATITIS CONTACT [None]
  - NECROSIS [None]
  - SQUAMOUS CELL CARCINOMA OF SKIN [None]
  - SYNOVIAL CYST [None]
  - WOUND INFECTION [None]
